FAERS Safety Report 15852684 (Version 1)
Quarter: 2019Q1

REPORT INFORMATION
  Report Type: Spontaneous
  Country: US (occurrence: US)
  Receive Date: 20190118
  Receipt Date: 20190118
  Transmission Date: 20190417
  Serious: Yes (Disabling)
  Sender: FDA-Public Use
  Company Number: None

PATIENT
  Age: 26 Year
  Sex: Female
  Weight: 47.25 kg

DRUGS (5)
  1. CIPROFLOXACIN. [Suspect]
     Active Substance: CIPROFLOXACIN
     Indication: PYREXIA
     Route: 048
     Dates: start: 20180212, end: 20180215
  2. MULTIVITAMIN WITH IRON [Concomitant]
     Active Substance: IRON\VITAMINS
  3. CIPROFLOXACIN. [Suspect]
     Active Substance: CIPROFLOXACIN
     Indication: URINARY TRACT INFECTION
     Route: 048
     Dates: start: 20180212, end: 20180215
  4. MITO-Q [Concomitant]
  5. TUMERIC [Concomitant]
     Active Substance: HERBALS\TURMERIC

REACTIONS (13)
  - Arthralgia [None]
  - Cognitive disorder [None]
  - Joint stiffness [None]
  - Abdominal pain upper [None]
  - Anxiety [None]
  - Swelling [None]
  - Muscle fatigue [None]
  - Limb discomfort [None]
  - Depression [None]
  - Sleep disorder [None]
  - Burning sensation [None]
  - Muscular weakness [None]
  - Loss of personal independence in daily activities [None]

NARRATIVE: CASE EVENT DATE: 20180215
